FAERS Safety Report 5553596-0 (Version None)
Quarter: 2007Q4

REPORT INFORMATION
  Report Type: 
  Country: None (occurrence: None)
  Receive Date: 20071212
  Receipt Date: 20071212
  Transmission Date: 20080405
  Serious: Yes (Hospitalization)
  Sender: FDA-Public Use
  Company Number: None

PATIENT
  Age: 42 Year
  Sex: Female
  Weight: 58.9676 kg

DRUGS (1)
  1. AVELOX [Suspect]
     Indication: SINUSITIS
     Dosage: 400 MG 1 X DAY ORAL 2 DOSES
     Route: 048
     Dates: start: 20071105, end: 20071106

REACTIONS (10)
  - ABDOMINAL DISCOMFORT [None]
  - ANXIETY [None]
  - CHEST PAIN [None]
  - DIZZINESS [None]
  - DYSPEPSIA [None]
  - HEART RATE INCREASED [None]
  - NAUSEA [None]
  - NERVOUSNESS [None]
  - TENSION [None]
  - TREMOR [None]
